FAERS Safety Report 8213431-9 (Version None)
Quarter: 2012Q1

REPORT INFORMATION
  Report Type: 
  Country: None (occurrence: None)
  Receive Date: 20120315
  Receipt Date: 20120306
  Transmission Date: 20120608
  Serious: Yes (Hospitalization)
  Sender: FDA-Public Use
  Company Number: US-ROCHE-1048943

PATIENT
  Sex: Female

DRUGS (4)
  1. TAMIFLU [Suspect]
     Indication: INFLUENZA
     Route: 048
     Dates: start: 20120305
  2. ZOSYN [Concomitant]
  3. CIPROFLOXACIN [Concomitant]
  4. NEUPOGEN [Concomitant]

REACTIONS (1)
  - RESPIRATORY FAILURE [None]
